FAERS Safety Report 15617252 (Version 1)
Quarter: 2018Q4

REPORT INFORMATION
  Report Type: Spontaneous
  Country: IT (occurrence: IT)
  Receive Date: 20181114
  Receipt Date: 20181114
  Transmission Date: 20190205
  Serious: Yes (Other)
  Sender: FDA-Public Use
  Company Number: IT-EISAI MEDICAL RESEARCH-EC-2018-047513

PATIENT
  Age: 66 Year
  Sex: Male

DRUGS (1)
  1. LENVATINIB [Suspect]
     Active Substance: LENVATINIB
     Indication: PAPILLARY THYROID CANCER
     Route: 048

REACTIONS (4)
  - Weight decreased [Unknown]
  - Hypertension [Unknown]
  - Decreased appetite [Unknown]
  - Primary adrenal insufficiency [Recovering/Resolving]
